FAERS Safety Report 18689690 (Version 1)
Quarter: 2020Q4

REPORT INFORMATION
  Report Type: Spontaneous
  Country: US (occurrence: US)
  Receive Date: 20201231
  Receipt Date: 20201231
  Transmission Date: 20210114
  Serious: No
  Sender: FDA-Public Use
  Company Number: US-PFIZER INC-2020514306

PATIENT
  Age: 60 Year
  Sex: Female
  Weight: 143 kg

DRUGS (1)
  1. IBRANCE [Suspect]
     Active Substance: PALBOCICLIB
     Indication: BREAST CANCER FEMALE
     Dosage: 125 MG, CYCLIC [1 DAILY FOR 21 DAYS]
     Route: 048
     Dates: start: 20171127, end: 202011

REACTIONS (3)
  - Bone pain [Recovered/Resolved]
  - Pleural effusion [Recovered/Resolved]
  - Myalgia [Recovered/Resolved]
